FAERS Safety Report 6058133-2 (Version None)
Quarter: 2009Q1

REPORT INFORMATION
  Report Type: 
  Country: None (occurrence: None)
  Receive Date: 20090127
  Receipt Date: 20090114
  Transmission Date: 20090719
  Serious: Yes (Other)
  Sender: FDA-Public Use
  Company Number: 230001M09SWE

PATIENT
  Sex: Female

DRUGS (1)
  1. REBIF [Suspect]
     Indication: DRUG USE FOR UNKNOWN INDICATION
     Dosage: 22 MCG,; 44 MCG,
     Dates: start: 20070501

REACTIONS (2)
  - ALVEOLITIS [None]
  - LIVER FUNCTION TEST ABNORMAL [None]
